FAERS Safety Report 9874566 (Version 1)
Quarter: 2014Q1

REPORT INFORMATION
  Report Type: Other
  Country: US (occurrence: US)
  Receive Date: 20140206
  Receipt Date: 20140206
  Transmission Date: 20141002
  Serious: No
  Sender: FDA-Public Use
  Company Number: US-ACORDA-ACO_36162_2013

PATIENT
  Age: 55 Year
  Sex: Female
  Weight: 65.76 kg

DRUGS (4)
  1. AMPYRA [Suspect]
     Indication: GAIT DISTURBANCE
     Dosage: 10 MG, UNK
     Route: 048
     Dates: start: 201206, end: 20130429
  2. AMPYRA [Suspect]
     Dosage: 10 MG, UNK
     Route: 048
     Dates: start: 20130509
  3. COPAXONE [Concomitant]
     Indication: PRODUCT USED FOR UNKNOWN INDICATION
     Dosage: UNK
     Dates: start: 2000
  4. ALL OTHER THERAPEUTIC PRODUCTS [Concomitant]
     Indication: BLOOD PRESSURE
     Dosage: UNK
     Dates: start: 2008

REACTIONS (1)
  - Drug dose omission [Unknown]
